FAERS Safety Report 5028928-2 (Version None)
Quarter: 2006Q2

REPORT INFORMATION
  Report Type: 
  Country: None (occurrence: None)
  Receive Date: 20060619
  Receipt Date: 20060616
  Transmission Date: 20061013
  Serious: Yes (Life-Threatening)
  Sender: FDA-Public Use
  Company Number: FR-GLAXOSMITHKLINE-B0427774A

PATIENT
  Age: 44 Year
  Sex: Male

DRUGS (3)
  1. AUGMENTIN '125' [Suspect]
     Dosage: 1UNIT CUMULATIVE DOSE
     Route: 048
     Dates: start: 20060301
  2. MUCOLATOR [Concomitant]
     Dosage: 1UNIT CUMULATIVE DOSE
     Route: 048
     Dates: start: 20060301
  3. CARDENSIEL [Concomitant]
     Route: 065

REACTIONS (6)
  - ABDOMINAL PAIN [None]
  - ANGIONEUROTIC OEDEMA [None]
  - FACE OEDEMA [None]
  - GENERALISED ERYTHEMA [None]
  - PAINFUL RESPIRATION [None]
  - VOMITING [None]
